FAERS Safety Report 4314241-5 (Version None)
Quarter: 2004Q1

REPORT INFORMATION
  Report Type: 
  Country: None (occurrence: None)
  Receive Date: 20040309
  Receipt Date: 20040309
  Transmission Date: 20041129
  Serious: Yes (Hospitalization, Disabling)
  Sender: FDA-Public Use
  Company Number: None

PATIENT
  Age: 36 Year
  Sex: Male
  Weight: 73.4827 kg

DRUGS (5)
  1. DEPOMEDROL SINGLE DOSE VIAL PHARMACIA UPJOHN [Suspect]
     Indication: INTERVERTEBRAL DISC PROTRUSION
     Dates: start: 19970814, end: 19970901
  2. NEURONTIN [Concomitant]
  3. OXYCONTIN [Concomitant]
  4. DARVOCET [Concomitant]
  5. ATIVAN [Concomitant]

REACTIONS (6)
  - ARACHNOIDITIS [None]
  - FALL [None]
  - HEADACHE [None]
  - MEDICATION ERROR [None]
  - MUSCLE SPASTICITY [None]
  - URINARY INCONTINENCE [None]
